FAERS Safety Report 20141023 (Version 2)
Quarter: 2022Q1

REPORT INFORMATION
  Report Type: Report from Study
  Country: US (occurrence: US)
  Receive Date: 20211202
  Receipt Date: 20220223
  Transmission Date: 20220424
  Serious: No
  Sender: FDA-Public Use
  Company Number: US-NOVARTISTESTPH-NVSC2021US274781

PATIENT
  Sex: Female

DRUGS (1)
  1. COSENTYX [Suspect]
     Active Substance: SECUKINUMAB
     Indication: Psoriasis
     Dosage: 150 MG (WEEK 0, 1, 2, 3, 4, 5 AND THEN EVERY 4 WEEKS THEREAFTER)
     Route: 058

REACTIONS (1)
  - Bronchitis [Unknown]
